FAERS Safety Report 9163200 (Version 4)
Quarter: 2013Q3

REPORT INFORMATION
  Report Type: Spontaneous
  Country: US (occurrence: US)
  Receive Date: 20130314
  Receipt Date: 20130718
  Transmission Date: 20140515
  Serious: Yes (Life-Threatening, Hospitalization, Other)
  Sender: FDA-Public Use
  Company Number: US-GLAXOSMITHKLINE-A1015120A

PATIENT
  Age: 74 Year
  Sex: Male
  Weight: 79.5 kg

DRUGS (4)
  1. AVANDAMET [Suspect]
     Indication: TYPE 2 DIABETES MELLITUS
     Route: 048
     Dates: start: 2004
  2. AVANDIA [Suspect]
     Indication: TYPE 2 DIABETES MELLITUS
     Dosage: 2MG PER DAY
     Route: 048
     Dates: start: 2004
  3. GLIPIZIDE [Concomitant]
  4. VITAMINS [Concomitant]

REACTIONS (4)
  - Atrioventricular block [Recovering/Resolving]
  - Abdominal discomfort [Unknown]
  - Flatulence [Unknown]
  - Myocardial infarction [Unknown]
